FAERS Safety Report 6738787-5 (Version None)
Quarter: 2010Q2

REPORT INFORMATION
  Report Type: 
  Country: None (occurrence: None)
  Receive Date: 20100524
  Receipt Date: 20100514
  Transmission Date: 20101027
  Serious: Yes (Hospitalization)
  Sender: FDA-Public Use
  Company Number: US-WYE-H15138810

PATIENT
  Age: 52 Year
  Sex: Male

DRUGS (2)
  1. TEMSIROLIMUS [Suspect]
     Indication: CARCINOID TUMOUR
     Dosage: 25MG ON DAYS 1, 8, 15, AND 22
     Route: 042
     Dates: start: 20100212, end: 20100416
  2. BEVACIZUMAB [Suspect]
     Indication: CARCINOID TUMOUR
     Dosage: 10MG/KG OVER 30-90 MINUTES ON DAYS 1 AND 15
     Route: 042
     Dates: start: 20100212, end: 20100326

REACTIONS (1)
  - ANAL ULCER [None]
